FAERS Safety Report 9778856 (Version 2)
Quarter: 2013Q4

REPORT INFORMATION
  Report Type: Spontaneous
  Country: IT (occurrence: IT)
  Receive Date: 20131223
  Receipt Date: 20131223
  Transmission Date: 20140711
  Serious: Yes (Other)
  Sender: FDA-Public Use
  Company Number: IT-SA-2013SA100833

PATIENT
  Age: 83 Year
  Sex: Male

DRUGS (4)
  1. ENOXAPARIN SODIUM [Suspect]
     Indication: ATRIAL FIBRILLATION
     Route: 058
     Dates: start: 20130604, end: 20130607
  2. PANTOPRAZOLE [Concomitant]
  3. TARGIN [Concomitant]
  4. PLAUNAC [Concomitant]

REACTIONS (2)
  - Retroperitoneal haematoma [Recovering/Resolving]
  - Back pain [Recovering/Resolving]
